FAERS Safety Report 9391201 (Version 2)
Quarter: 2013Q3

REPORT INFORMATION
  Report Type: Spontaneous
  Country: US (occurrence: US)
  Receive Date: 20130709
  Receipt Date: 20130807
  Transmission Date: 20140515
  Serious: Yes (Other)
  Sender: FDA-Public Use
  Company Number: US-PFIZER INC-2013197254

PATIENT
  Age: 53 Year
  Sex: Female
  Weight: 68.48 kg

DRUGS (2)
  1. SUTENT [Suspect]
     Indication: ALVEOLAR SOFT PART SARCOMA
     Dosage: 37.5 MG, CYCLIC (4 WEEKS ON, 2 WKS OFF)
     Dates: start: 20130126
  2. SUTENT [Suspect]
     Dosage: 25 MG, CYCLIC (25 MG DAILY FOR 2 WEEKS AND HAS 1 WEEK OFF)
     Dates: start: 20130620

REACTIONS (12)
  - Off label use [Unknown]
  - Abasia [Unknown]
  - Palmar-plantar erythrodysaesthesia syndrome [Recovered/Resolved]
  - Blister [Recovered/Resolved]
  - Hair colour changes [Unknown]
  - Skin discolouration [Unknown]
  - Disease progression [Unknown]
  - Alveolar soft part sarcoma [Unknown]
  - Diarrhoea [Unknown]
  - Thyroid function test abnormal [Unknown]
  - Blood cholesterol abnormal [Unknown]
  - Dysgeusia [Unknown]
